FAERS Safety Report 9639441 (Version 2)
Quarter: 2013Q4

REPORT INFORMATION
  Report Type: Spontaneous
  Country: IT (occurrence: IT)
  Receive Date: 20131022
  Receipt Date: 20131031
  Transmission Date: 20140711
  Serious: Yes (Hospitalization)
  Sender: FDA-Public Use
  Company Number: IT-PFIZER INC-2013298396

PATIENT
  Age: 62 Year
  Sex: Male
  Weight: 59 kg

DRUGS (2)
  1. CYTARABINE [Suspect]
     Indication: NON-HODGKIN^S LYMPHOMA
     Dosage: 800 MG, TOTAL
     Route: 042
     Dates: start: 20131008, end: 20131008
  2. LEVACT [Suspect]
     Indication: NON-HODGKIN^S LYMPHOMA
     Dosage: 100 MG, TOTAL
     Route: 042
     Dates: start: 20131008, end: 20131008

REACTIONS (3)
  - Pyrexia [Recovered/Resolved]
  - Chills [Recovered/Resolved]
  - Nausea [Recovered/Resolved]
